FAERS Safety Report 8450959-0 (Version None)
Quarter: 2012Q2

REPORT INFORMATION
  Report Type: 
  Country: None (occurrence: None)
  Receive Date: 20120620
  Receipt Date: 20120606
  Transmission Date: 20120825
  Serious: Yes (Other)
  Sender: FDA-Public Use
  Company Number: US-ROCHE-1043061

PATIENT
  Sex: Male
  Weight: 88.076 kg

DRUGS (2)
  1. PREDNISONE TAB [Concomitant]
  2. ACCUTANE [Suspect]
     Indication: ACNE
     Dates: start: 19981123, end: 19990402

REACTIONS (6)
  - CROHN'S DISEASE [None]
  - DEPRESSION [None]
  - STRESS [None]
  - COLITIS ULCERATIVE [None]
  - ANAL FISSURE [None]
  - INFLAMMATORY BOWEL DISEASE [None]
